FAERS Safety Report 7183625-2 (Version None)
Quarter: 2010Q4

REPORT INFORMATION
  Report Type: 
  Country: None (occurrence: None)
  Receive Date: 20101220
  Receipt Date: 20101220
  Transmission Date: 20110411
  Serious: Yes (Hospitalization)
  Sender: FDA-Public Use
  Company Number: None

PATIENT
  Age: 56 Year
  Sex: Female
  Weight: 85.3 kg

DRUGS (13)
  1. XANAX [Suspect]
     Indication: ANXIETY
     Dosage: 0.5 MG BID PO  RECENT
     Route: 048
  2. OXYCODONE [Suspect]
     Indication: KNEE ARTHROPLASTY
     Dosage: 5MG (2-4 TABS) Q6H PRN PO  RECENT
     Route: 048
  3. LASIX [Concomitant]
  4. ACYCLOVIR [Concomitant]
  5. BACTRIM [Concomitant]
  6. RESTASIS [Concomitant]
  7. OMEPRAZOLE [Concomitant]
  8. COUMADIN [Concomitant]
  9. KEFLEX [Concomitant]
  10. BACLOFEN [Concomitant]
  11. MEDROL [Concomitant]
  12. PROGRAF [Concomitant]
  13. LACTULOSE [Concomitant]

REACTIONS (2)
  - MENTAL STATUS CHANGES [None]
  - SOMNOLENCE [None]
